FAERS Safety Report 17605161 (Version 1)
Quarter: 2020Q1

REPORT INFORMATION
  Report Type: Spontaneous
  Country: US (occurrence: US)
  Receive Date: 20200331
  Receipt Date: 20200331
  Transmission Date: 20200409
  Serious: No
  Sender: FDA-Public Use
  Company Number: NVSC2020US087901

PATIENT
  Age: 52 Year
  Sex: Male

DRUGS (9)
  1. OLANZAPINE. [Suspect]
     Active Substance: OLANZAPINE
     Dosage: 10 MG, QD (NIGHTLY)
     Route: 065
  2. LORAZEPAM. [Concomitant]
     Active Substance: LORAZEPAM
     Indication: AGITATION
     Dosage: 0.5 MG, TID
     Route: 065
  3. VALPROIC ACID. [Concomitant]
     Active Substance: VALPROIC ACID
     Indication: IMPULSIVE BEHAVIOUR
     Dosage: UNK
     Route: 065
  4. OLANZAPINE. [Suspect]
     Active Substance: OLANZAPINE
     Dosage: 20 MG, QD  (NIGHTLY)
     Route: 065
  5. PENICILLINE G [Concomitant]
     Indication: PRODUCT USED FOR UNKNOWN INDICATION
     Dosage: UNK, Q4H (3.5 MILLION UNITS) (ON DAY 8)
     Route: 042
  6. OLANZAPINE. [Suspect]
     Active Substance: OLANZAPINE
     Indication: DELUSION
     Dosage: 5 MG, Q8H
     Route: 030
  7. VALPROIC ACID. [Concomitant]
     Active Substance: VALPROIC ACID
     Indication: HYPERSEXUALITY
  8. LORAZEPAM. [Concomitant]
     Active Substance: LORAZEPAM
     Indication: DELUSION OF GRANDEUR
     Dosage: 1 MG
     Route: 065
  9. VALPROIC ACID. [Concomitant]
     Active Substance: VALPROIC ACID
     Indication: EUPHORIC MOOD

REACTIONS (1)
  - Drug ineffective [Unknown]
